FAERS Safety Report 5765339-6 (Version None)
Quarter: 2008Q2

REPORT INFORMATION
  Report Type: 
  Country: None (occurrence: None)
  Receive Date: 20080609
  Receipt Date: 20080609
  Transmission Date: 20081010
  Serious: Yes (Other)
  Sender: FDA-Public Use
  Company Number: None

PATIENT
  Sex: Female
  Weight: 52.1637 kg

DRUGS (1)
  1. DIGITEK   0.125MG [Suspect]
     Indication: HEART RATE IRREGULAR
     Dosage: 1 ONCE DAILY OTHER
     Route: 050
     Dates: start: 20070401, end: 20080513

REACTIONS (6)
  - DIARRHOEA [None]
  - DIZZINESS [None]
  - DYSPNOEA [None]
  - FALL [None]
  - PHARMACEUTICAL PRODUCT COMPLAINT [None]
  - WHEEZING [None]
